FAERS Safety Report 14880969 (Version 1)
Quarter: 2018Q2

REPORT INFORMATION
  Report Type: Spontaneous
  Country: US (occurrence: US)
  Receive Date: 20180511
  Receipt Date: 20180511
  Transmission Date: 20180711
  Serious: Yes (Other)
  Sender: FDA-Public Use
  Company Number: US-SA-2018SA119217

PATIENT
  Age: 67 Year
  Sex: Male
  Weight: 157 kg

DRUGS (5)
  1. ASPIRIN. [Concomitant]
     Active Substance: ASPIRIN
     Indication: CARDIAC DISORDER
     Route: 065
     Dates: start: 200008
  2. ALTACE [Concomitant]
     Active Substance: RAMIPRIL
     Indication: CARDIAC DISORDER
     Route: 065
     Dates: start: 200008
  3. LIPITOR [Concomitant]
     Active Substance: ATORVASTATIN CALCIUM
     Route: 065
     Dates: start: 200008
  4. MULTAQ [Suspect]
     Active Substance: DRONEDARONE
     Indication: CARDIAC FLUTTER
     Route: 048
     Dates: start: 20180418, end: 20180430
  5. MULTAQ [Suspect]
     Active Substance: DRONEDARONE
     Indication: CARDIAC FLUTTER
     Route: 048
     Dates: start: 20180322, end: 20180404

REACTIONS (3)
  - Atrial fibrillation [Not Recovered/Not Resolved]
  - Rash [Not Recovered/Not Resolved]
  - Pruritus [Not Recovered/Not Resolved]

NARRATIVE: CASE EVENT DATE: 20180405
